FAERS Safety Report 15324558 (Version 5)
Quarter: 2020Q2

REPORT INFORMATION
  Report Type: Spontaneous
  Country: DE (occurrence: DE)
  Receive Date: 20180828
  Receipt Date: 20200520
  Transmission Date: 20200713
  Serious: Yes (Other)
  Sender: FDA-Public Use
  Company Number: DE-TORRENT-00009642

PATIENT
  Age: 61 Year
  Sex: Female
  Weight: 97 kg

DRUGS (3)
  1. METFORMIN [Suspect]
     Active Substance: METFORMIN HYDROCHLORIDE
     Indication: TYPE 2 DIABETES MELLITUS
     Dosage: 1000 MG, NON-AZ PRODUCT
     Route: 065
  2. DAPAGLIFLOZIN. [Suspect]
     Active Substance: DAPAGLIFLOZIN
     Indication: TYPE 2 DIABETES MELLITUS
     Dosage: 10 MG, QD
     Route: 048
  3. SITAGLIPTIN PHOSPHATE [Suspect]
     Active Substance: SITAGLIPTIN PHOSPHATE
     Indication: TYPE 2 DIABETES MELLITUS
     Dosage: 100 MG, QD
     Route: 048
     Dates: start: 2016

REACTIONS (10)
  - Decreased vibratory sense [Unknown]
  - Visual impairment [Unknown]
  - Neuropathy peripheral [Unknown]
  - Gastrointestinal disorder [Recovered/Resolved]
  - Diabetes mellitus inadequate control [Recovering/Resolving]
  - Limb discomfort [Unknown]
  - Sensory disturbance [Unknown]
  - Pain in extremity [Unknown]
  - Sleep disorder [Unknown]
  - Temperature perception test abnormal [Unknown]

NARRATIVE: CASE EVENT DATE: 2016
